FAERS Safety Report 19241119 (Version 1)
Quarter: 2021Q2

REPORT INFORMATION
  Report Type: Spontaneous
  Country: US (occurrence: US)
  Receive Date: 20210510
  Receipt Date: 20210510
  Transmission Date: 20210717
  Serious: No
  Sender: FDA-Public Use
  Company Number: None

PATIENT
  Sex: Male

DRUGS (1)
  1. HUMIRA [Suspect]
     Active Substance: ADALIMUMAB
     Indication: RHEUMATOID ARTHRITIS
     Dosage: OTHER FREQUENCY:EVERY 14 DAYS ;?
     Route: 058
     Dates: start: 202102

REACTIONS (4)
  - Drug ineffective [None]
  - Joint swelling [None]
  - Peripheral swelling [None]
  - Arthralgia [None]
